FAERS Safety Report 7673803-8 (Version None)
Quarter: 2011Q3

REPORT INFORMATION
  Report Type: 
  Country: None (occurrence: None)
  Receive Date: 20110810
  Receipt Date: 20110729
  Transmission Date: 20111222
  Serious: Yes (Life-Threatening, Other)
  Sender: FDA-Public Use
  Company Number: PHHY2011FR68004

PATIENT
  Sex: Male

DRUGS (6)
  1. REPAGLINIDE [Suspect]
     Dosage: 2 MG, TID
  2. INDAPAMIDE [Suspect]
     Dosage: UNK
  3. ACTOS [Suspect]
     Dosage: 15 MG, QD
     Dates: start: 20071030, end: 20101207
  4. LESCOL [Suspect]
     Dosage: UNK
  5. GLUCOPHAGE [Suspect]
     Dosage: UNK
  6. PLAVIX [Suspect]
     Dosage: UNK

REACTIONS (7)
  - URETERAL POLYP [None]
  - POLLAKIURIA [None]
  - INFLAMMATION [None]
  - BLADDER DISORDER [None]
  - TRANSITIONAL CELL CARCINOMA [None]
  - HAEMATURIA [None]
  - DYSURIA [None]
